FAERS Safety Report 8715572 (Version 2)
Quarter: 2012Q4

REPORT INFORMATION
  Report Type: Report from Study
  Country: PE (occurrence: PE)
  Receive Date: 20120809
  Receipt Date: 20121106
  Transmission Date: 20130627
  Serious: Yes (Hospitalization, Other)
  Sender: FDA-Public Use
  Company Number: PE-BRISTOL-MYERS SQUIBB COMPANY-16819898

PATIENT
  Age: 72 Year
  Sex: Female

DRUGS (5)
  1. ABATACEPT [Suspect]
     Indication: RHEUMATOID ARTHRITIS
     Dosage: Last dose administered on 30Jul2012
     Route: 058
     Dates: start: 20081222, end: 20120730
  2. METHOTREXATE [Suspect]
     Dates: start: 20090615
  3. IBUPROFEN [Concomitant]
     Dates: start: 20090903
  4. DICLOFENAC [Concomitant]
     Dates: start: 20050716
  5. FOLIC ACID [Concomitant]
     Dates: start: 20070414

REACTIONS (1)
  - Pancreatic cyst [Not Recovered/Not Resolved]
